FAERS Safety Report 19523356 (Version 2)
Quarter: 2021Q3

REPORT INFORMATION
  Report Type: Spontaneous
  Country: TR (occurrence: TR)
  Receive Date: 20210712
  Receipt Date: 20210714
  Transmission Date: 20211014
  Serious: Yes (Other)
  Sender: FDA-Public Use
  Company Number: TR-ALXN-A202107859

PATIENT

DRUGS (2)
  1. SOLIRIS [Suspect]
     Active Substance: ECULIZUMAB
     Dosage: 1200 MG, EVERY 12 DAYS
     Route: 065
  2. SOLIRIS [Suspect]
     Active Substance: ECULIZUMAB
     Indication: PAROXYSMAL NOCTURNAL HAEMOGLOBINURIA
     Dosage: 300 MG, Q2W
     Route: 065
     Dates: start: 2012, end: 2018

REACTIONS (2)
  - Paroxysmal nocturnal haemoglobinuria [Unknown]
  - Condition aggravated [Unknown]
